FAERS Safety Report 8489317-1 (Version None)
Quarter: 2012Q3

REPORT INFORMATION
  Report Type: 
  Country: None (occurrence: None)
  Receive Date: 20120705
  Receipt Date: 20120703
  Transmission Date: 20120928
  Serious: No
  Sender: FDA-Public Use
  Company Number: US-PFIZER INC-2012159803

PATIENT
  Sex: Male
  Weight: 82.54 kg

DRUGS (2)
  1. RAPAMUNE [Suspect]
     Indication: POSTOPERATIVE CARE
     Dosage: 5 MG (5 OF 1MG), 1X/DAY
     Route: 048
     Dates: end: 20120601
  2. CELLCEPT [Concomitant]
     Dosage: UNK

REACTIONS (3)
  - EPISTAXIS [None]
  - DYSPNOEA [None]
  - NASAL CONGESTION [None]
